FAERS Safety Report 6951293-8 (Version None)
Quarter: 2010Q3

REPORT INFORMATION
  Report Type: 
  Country: None (occurrence: None)
  Receive Date: 20100828
  Receipt Date: 20100317
  Transmission Date: 20110219
  Serious: No
  Sender: FDA-Public Use
  Company Number: US-ABBOTT-10P-163-0633934-00

PATIENT
  Sex: Female

DRUGS (4)
  1. NIASPAN [Suspect]
     Indication: PRODUCT USED FOR UNKNOWN INDICATION
     Dates: end: 20100201
  2. NIASPAN [Suspect]
     Dates: start: 20100201
  3. NIASPAN [Suspect]
     Dates: start: 20100201, end: 20100201
  4. IMODIUM [Suspect]
     Indication: DIARRHOEA

REACTIONS (2)
  - DIARRHOEA [None]
  - FLUSHING [None]
